FAERS Safety Report 12992449 (Version 1)
Quarter: 2016Q4

REPORT INFORMATION
  Report Type: Spontaneous
  Country: US (occurrence: US)
  Receive Date: 20161202
  Receipt Date: 20161202
  Transmission Date: 20170207
  Serious: Yes (Other)
  Sender: FDA-Public Use
  Company Number: US-ROCHE-1860839

PATIENT
  Age: 65 Year
  Sex: Female
  Weight: 63.56 kg

DRUGS (2)
  1. TAMIFLU [Suspect]
     Active Substance: OSELTAMIVIR PHOSPHATE
     Indication: INFLUENZA
     Dosage: YES
     Route: 048
  2. CODEINE [Concomitant]
     Active Substance: CODEINE
     Route: 065

REACTIONS (6)
  - Contusion [Unknown]
  - Haemorrhage [Unknown]
  - Loss of consciousness [Unknown]
  - Chest injury [Unknown]
  - Painful respiration [Unknown]
  - Fall [Unknown]

NARRATIVE: CASE EVENT DATE: 201611
